FAERS Safety Report 6680977-4 (Version None)
Quarter: 2010Q2

REPORT INFORMATION
  Report Type: 
  Country: None (occurrence: None)
  Receive Date: 20100413
  Receipt Date: 20100413
  Transmission Date: 20101027
  Serious: No
  Sender: FDA-Public Use
  Company Number: None

PATIENT
  Age: 47 Year
  Sex: Female
  Weight: 76.2043 kg

DRUGS (1)
  1. LYRICA [Suspect]
     Indication: NEUROPATHY PERIPHERAL
     Dosage: 200MG 1 PO
     Route: 048

REACTIONS (6)
  - BLINDNESS UNILATERAL [None]
  - BODY TEMPERATURE INCREASED [None]
  - HEADACHE [None]
  - OPTIC NERVE DISORDER [None]
  - PAPILLOEDEMA [None]
  - SWELLING [None]
